FAERS Safety Report 24622539 (Version 1)
Quarter: 2024Q4

REPORT INFORMATION
  Report Type: Spontaneous
  Country: CA (occurrence: CA)
  Receive Date: 20241115
  Receipt Date: 20241115
  Transmission Date: 20250115
  Serious: Yes (Other)
  Sender: ACCORD
  Company Number: None

PATIENT
  Age: 62 Year
  Sex: Female
  Weight: 69 kg

DRUGS (15)
  1. METHOTREXATE SODIUM [Suspect]
     Active Substance: METHOTREXATE SODIUM
     Indication: Colitis ulcerative
     Dosage: 1 EVERY 1 WEEKS
     Route: 058
  2. ASPIRIN [Concomitant]
     Active Substance: ASPIRIN
     Dosage: 1 EVERY 1 DAYS
  3. ACYCLOVIR [Concomitant]
     Active Substance: ACYCLOVIR
     Dosage: 3 EVERY 1 DAYS
  4. ATORVASTATIN [Concomitant]
     Active Substance: ATORVASTATIN
     Dosage: 1 EVERY 1 DAYS
  5. CLONAZEPAM [Concomitant]
     Active Substance: CLONAZEPAM
     Dosage: 2 EVERY 1 DAYS
  6. EMPAGLIFLOZIN [Concomitant]
     Active Substance: EMPAGLIFLOZIN
     Dosage: 1 EVERY 1 DAYS
  7. EZETIMIBE [Concomitant]
     Active Substance: EZETIMIBE
     Dosage: 1 EVERY 1 DAYS
  8. FOLIC ACID [Concomitant]
     Active Substance: FOLIC ACID
     Dosage: 1 EVERY 1 DAYS
  9. GLICLAZIDE [Concomitant]
     Active Substance: GLICLAZIDE
     Dosage: 1 EVERY 1 DAYS
  10. METFORMIN [Concomitant]
     Active Substance: METFORMIN HYDROCHLORIDE
     Dosage: 1 EVERY 1 DAYS
  11. PANTOPRAZOLE [Concomitant]
     Active Substance: PANTOPRAZOLE
     Dosage: 1 EVERY 1 DAYS
  12. POTASSIUM CHLORIDE [Concomitant]
     Active Substance: POTASSIUM CHLORIDE
     Dosage: 2 EVERY 1 DAYS
  13. PREDNISONE [Concomitant]
     Active Substance: PREDNISONE
     Dosage: 1 EVERY 1 DAYS
  14. SERTRALINE [Concomitant]
     Active Substance: SERTRALINE HYDROCHLORIDE
     Dosage: 1 EVERY 1 DAYS
  15. SULFASALAZINE [Concomitant]
     Active Substance: SULFASALAZINE
     Dosage: 2 EVERY 1 DAYS
     Route: 048

REACTIONS (4)
  - Off label use [Unknown]
  - Oral mucosal blistering [Unknown]
  - Oropharyngeal blistering [Unknown]
  - Toxicity to various agents [Unknown]
